FAERS Safety Report 16081231 (Version 1)
Quarter: 2019Q1

REPORT INFORMATION
  Report Type: Spontaneous
  Country: CA (occurrence: CA)
  Receive Date: 20190316
  Receipt Date: 20190316
  Transmission Date: 20190418
  Serious: Yes (Other)
  Sender: FDA-Public Use
  Company Number: CA-AUROBINDO-AUR-APL-2019-013847

PATIENT

DRUGS (1)
  1. TADALAFIL. [Suspect]
     Active Substance: TADALAFIL
     Indication: PULMONARY ARTERIAL HYPERTENSION
     Dosage: 40 MILLIGRAM
     Route: 065

REACTIONS (7)
  - Abdominal pain [Unknown]
  - Walking distance test abnormal [Unknown]
  - Distractibility [Unknown]
  - Pulmonary vascular disorder [Unknown]
  - Confusional state [Unknown]
  - Haemoglobin decreased [Unknown]
  - Right ventricular failure [Unknown]
